FAERS Safety Report 5761297-9 (Version None)
Quarter: 2008Q2

REPORT INFORMATION
  Report Type: 
  Country: None (occurrence: None)
  Receive Date: 20080606
  Receipt Date: 20080529
  Transmission Date: 20081010
  Serious: Yes (Hospitalization)
  Sender: FDA-Public Use
  Company Number: US-MERCK-0806USA00599

PATIENT
  Age: 56 Year
  Sex: Female

DRUGS (6)
  1. HYDRODIURIL [Suspect]
     Indication: HYPERTENSION
     Route: 048
     Dates: start: 20040301
  2. PROZAC [Concomitant]
     Route: 065
  3. SYNTHROID [Concomitant]
     Route: 065
  4. NEURONTIN [Concomitant]
     Route: 065
  5. AMBIEN [Concomitant]
     Route: 065
  6. VIOXX [Concomitant]
     Route: 048

REACTIONS (3)
  - CEREBROVASCULAR ACCIDENT [None]
  - INFLUENZA [None]
  - NASOPHARYNGITIS [None]
